FAERS Safety Report 10785876 (Version 1)
Quarter: 2015Q1

REPORT INFORMATION
  Report Type: Report from Study
  Country: IN (occurrence: IN)
  Receive Date: 20150211
  Receipt Date: 20150211
  Transmission Date: 20150721
  Serious: Yes (Death, Other)
  Sender: FDA-Public Use
  Company Number: PHHY2015IN015379

PATIENT
  Age: 80 Year
  Sex: Female
  Weight: 60 kg

DRUGS (8)
  1. ARICEPT [Concomitant]
     Active Substance: DONEPEZIL HYDROCHLORIDE
     Indication: DEMENTIA ALZHEIMER^S TYPE
     Dosage: 5 OR 10 MG, QD
     Route: 048
  2. ADMENTA [Concomitant]
     Indication: DEMENTIA ALZHEIMER^S TYPE
     Dosage: 5 MG, BID
     Route: 048
     Dates: start: 2008
  3. LOPEZ//LORAZEPAM [Concomitant]
     Indication: SLEEP DISORDER
     Dosage: 1 MG, QD
     Route: 048
  4. COGNIT [Concomitant]
     Indication: DEMENTIA ALZHEIMER^S TYPE
     Route: 048
  5. LOSAKIND [Concomitant]
     Indication: HYPERTENSION
     Dosage: UNK UNK, QD
     Route: 048
     Dates: start: 2009
  6. STORAX//CITICOLINE [Concomitant]
     Indication: MEMORY IMPAIRMENT
     Dosage: 500 MG, BID
     Route: 048
  7. EXELON PATCH [Suspect]
     Active Substance: RIVASTIGMINE
     Indication: DEMENTIA ALZHEIMER^S TYPE
     Dosage: 4.6 MG/24 HOURS (PATCH 5 CM2 DAILY)
     Route: 062
     Dates: start: 2014
  8. EXELON PATCH [Suspect]
     Active Substance: RIVASTIGMINE
     Dosage: 9.5 MG/24 HOURS (PATCH 10 CM2 DAILY)
     Route: 062

REACTIONS (12)
  - Protein deficiency [Fatal]
  - Amnesia [Unknown]
  - Cerebral haemorrhage [Recovered/Resolved]
  - Hallucination [Unknown]
  - Blood sodium abnormal [Fatal]
  - Mineral metabolism disorder [Fatal]
  - Decubitus ulcer [Fatal]
  - Illusion [Unknown]
  - Sepsis [Fatal]
  - Dehydration [Fatal]
  - Fall [Unknown]
  - Somnambulism [Unknown]

NARRATIVE: CASE EVENT DATE: 20140409
